FAERS Safety Report 5174253-9 (Version None)
Quarter: 2006Q4

REPORT INFORMATION
  Report Type: 
  Country: None (occurrence: None)
  Receive Date: 20061214
  Receipt Date: 20060113
  Transmission Date: 20070319
  Serious: Yes (Hospitalization)
  Sender: FDA-Public Use
  Company Number: US-ROCHE-432360

PATIENT
  Age: 24 Year
  Sex: Male

DRUGS (2)
  1. ACCUTANE [Suspect]
     Indication: DRUG USE FOR UNKNOWN INDICATION
     Route: 048
     Dates: start: 19870727, end: 19871129
  2. ACCUTANE [Suspect]
     Route: 048
     Dates: start: 19940802, end: 19940902

REACTIONS (27)
  - ABDOMINAL PAIN [None]
  - ADHESION [None]
  - ANAEMIA [None]
  - ANXIETY [None]
  - ASTHENIA [None]
  - ASTHMA [None]
  - BACTERIAL INFECTION [None]
  - COLITIS [None]
  - COLITIS ULCERATIVE [None]
  - CROHN'S DISEASE [None]
  - DEHYDRATION [None]
  - DEPRESSED MOOD [None]
  - DEPRESSION [None]
  - DIARRHOEA [None]
  - DISCOMFORT [None]
  - FATIGUE [None]
  - GENERALISED ANXIETY DISORDER [None]
  - INFLAMMATORY BOWEL DISEASE [None]
  - IRRITABILITY [None]
  - PHOBIA [None]
  - POUCHITIS [None]
  - PRESYNCOPE [None]
  - SLEEP DISORDER [None]
  - SMALL INTESTINAL OBSTRUCTION [None]
  - SOCIAL FEAR [None]
  - WEIGHT DECREASED [None]
  - WEIGHT INCREASED [None]
